FAERS Safety Report 23729243 (Version 1)
Quarter: 2024Q2

REPORT INFORMATION
  Report Type: Spontaneous
  Country: US (occurrence: US)
  Receive Date: 20240410
  Receipt Date: 20240410
  Transmission Date: 20240716
  Serious: No
  Sender: FDA-Public Use
  Company Number: US-FOUNDATIONCONSUMERHC-2024-US-000994

PATIENT
  Age: 47 Year
  Sex: Female
  Weight: 52.16 kg

DRUGS (4)
  1. PLAN B ONE-STEP [Suspect]
     Active Substance: LEVONORGESTREL
     Indication: Post coital contraception
     Dosage: 2 DOSES
     Route: 048
     Dates: start: 20240101, end: 20240102
  2. ZINC [Concomitant]
     Active Substance: PYRITHIONE ZINC\ZINC\ZINC CHLORIDE
  3. VITAMIN C [Concomitant]
     Active Substance: ASCORBIC ACID
  4. Holisitic mental wellness pill [Concomitant]

REACTIONS (3)
  - Intentional product misuse [Recovered/Resolved]
  - Dysmenorrhoea [Not Recovered/Not Resolved]
  - Incorrect dosage administered [Recovered/Resolved]

NARRATIVE: CASE EVENT DATE: 20240101
